FAERS Safety Report 9743639 (Version 3)
Quarter: 2013Q4

REPORT INFORMATION
  Report Type: Spontaneous
  Country: US (occurrence: US)
  Receive Date: 20131210
  Receipt Date: 20131212
  Transmission Date: 20140711
  Serious: No
  Sender: FDA-Public Use
  Company Number: US-TEVA-380748USA

PATIENT
  Age: 16 Year
  Sex: Female
  Weight: 59.02 kg

DRUGS (1)
  1. PARAGARD 380A [Suspect]
     Indication: CONTRACEPTION
     Route: 015
     Dates: start: 20120717, end: 20130114

REACTIONS (3)
  - Device expulsion [Recovered/Resolved]
  - Abdominal pain lower [Recovered/Resolved with Sequelae]
  - Cyst [Not Recovered/Not Resolved]
